FAERS Safety Report 4558031-7 (Version None)
Quarter: 2005Q1

REPORT INFORMATION
  Report Type: 
  Country: None (occurrence: None)
  Receive Date: 20050121
  Receipt Date: 20040601
  Transmission Date: 20050727
  Serious: No
  Sender: FDA-Public Use
  Company Number: US-BRISTOL-MYERS SQUIBB COMPANY-12608477

PATIENT
  Age: 49 Year
  Sex: Male

DRUGS (8)
  1. SERZONE [Suspect]
     Indication: DEPRESSION
     Route: 048
     Dates: start: 20001002, end: 20020122
  2. HYDROCODONE [Concomitant]
  3. GLIPIZIDE [Concomitant]
  4. OXYCODONE HCL + ACETAMINOPHEN [Concomitant]
  5. HYDROXYZINE [Concomitant]
  6. OLANZAPINE [Concomitant]
  7. NOVOLIN R [Concomitant]
  8. PROMETHAZINE [Concomitant]

REACTIONS (6)
  - BREAST MASS [None]
  - DYSPEPSIA [None]
  - FATIGUE [None]
  - IRRITABILITY [None]
  - PAIN [None]
  - ROAD TRAFFIC ACCIDENT [None]
